FAERS Safety Report 8578391 (Version 4)
Quarter: 2014Q3

REPORT INFORMATION
  Report Type: Spontaneous
  Country: US (occurrence: US)
  Receive Date: 20120524
  Receipt Date: 20140812
  Transmission Date: 20150326
  Serious: Yes (Hospitalization, Other)
  Sender: FDA-Public Use
  Company Number: US-BAYER-2012-050418

PATIENT
  Age: 31 Year
  Sex: Female
  Weight: 52.15 kg

DRUGS (4)
  1. PRENATAL [Concomitant]
     Active Substance: VITAMINS
     Dosage: UNK
     Dates: start: 1996, end: 2010
  2. LORTAB [Concomitant]
     Active Substance: ACETAMINOPHEN\HYDROCODONE BITARTRATE
     Indication: PAIN
     Dosage: UNK
     Dates: start: 20100708
  3. FOLIC ACID. [Concomitant]
     Active Substance: FOLIC ACID
     Dosage: UNK
     Dates: start: 20100520
  4. MIRENA [Suspect]
     Active Substance: LEVONORGESTREL
     Indication: CONTRACEPTION
     Dosage: 20 MCG/24HR, CONT
     Dates: start: 20091201, end: 20100708

REACTIONS (11)
  - Injury [None]
  - Uterine perforation [None]
  - Device dislocation [None]
  - Anhedonia [None]
  - Quality of life decreased [None]
  - Depression [None]
  - Device breakage [None]
  - Procedural pain [None]
  - Emotional distress [None]
  - Abdominal pain [None]
  - Scar [None]

NARRATIVE: CASE EVENT DATE: 20100524
